FAERS Safety Report 15591831 (Version 1)
Quarter: 2018Q4

REPORT INFORMATION
  Report Type: Spontaneous
  Country: US (occurrence: US)
  Receive Date: 20181106
  Receipt Date: 20181106
  Transmission Date: 20190205
  Serious: No
  Sender: FDA-Public Use
  Company Number: US-PFIZER INC-2018442276

PATIENT
  Age: 67 Year
  Sex: Male
  Weight: 140 kg

DRUGS (3)
  1. LYRICA [Suspect]
     Active Substance: PREGABALIN
     Dosage: 150 MG, 2X/DAY
     Route: 048
  2. LYRICA [Suspect]
     Active Substance: PREGABALIN
     Indication: FIBROMYALGIA
     Dosage: UNK (REDUCE IT BY HALF)
  3. LYRICA [Suspect]
     Active Substance: PREGABALIN
     Dosage: 2 DF, UNK

REACTIONS (8)
  - Tremor [Unknown]
  - Influenza like illness [Unknown]
  - Intentional product misuse [Unknown]
  - Pain [Recovering/Resolving]
  - Insomnia [Unknown]
  - Malaise [Unknown]
  - Nausea [Unknown]
  - Chills [Recovered/Resolved]
